FAERS Safety Report 24810842 (Version 5)
Quarter: 2025Q3

REPORT INFORMATION
  Report Type: Report from Study
  Country: JP (occurrence: JP)
  Receive Date: 20250106
  Receipt Date: 20250827
  Transmission Date: 20251021
  Serious: Yes (Death, Other)
  Sender: BRISTOL-MYERS SQUIBB COMPANY
  Company Number: JP-BRISTOL-MYERS SQUIBB COMPANY-2024-155735

PATIENT
  Age: 59 Year
  Sex: Male
  Weight: 47.8 kg

DRUGS (2)
  1. BREYANZI [Suspect]
     Active Substance: LISOCABTAGENE MARALEUCEL
     Indication: Diffuse large B-cell lymphoma
     Route: 042
     Dates: start: 20230410, end: 20230410
  2. CYCLOPHOSPHAMIDE [Concomitant]
     Active Substance: CYCLOPHOSPHAMIDE
     Indication: Diffuse large B-cell lymphoma
     Dates: start: 20230405

REACTIONS (11)
  - Septic shock [Fatal]
  - Disseminated intravascular coagulation [Fatal]
  - Multiple organ dysfunction syndrome [Fatal]
  - Cytomegalovirus chorioretinitis [Unknown]
  - Hypogammaglobulinaemia [Recovered/Resolved]
  - Chronic kidney disease [Unknown]
  - White blood cell count decreased [Recovered/Resolved]
  - Haemoglobin decreased [Unknown]
  - Haematuria [Unknown]
  - Cytomegalovirus infection [Unknown]
  - Stenotrophomonas maltophilia pneumonia [Fatal]

NARRATIVE: CASE EVENT DATE: 20230101
